FAERS Safety Report 16031724 (Version 5)
Quarter: 2020Q1

REPORT INFORMATION
  Report Type: Spontaneous
  Country: US (occurrence: US)
  Receive Date: 20190304
  Receipt Date: 20200204
  Transmission Date: 20200409
  Serious: Yes (Disabling, Other)
  Sender: FDA-Public Use
  Company Number: US-ASTRAZENECA-2018SF65002

PATIENT
  Age: 62 Year
  Sex: Female
  Weight: 77.1 kg

DRUGS (21)
  1. ASPIRIN. [Concomitant]
     Active Substance: ASPIRIN
     Indication: BLOOD PRESSURE ABNORMAL
     Route: 065
     Dates: start: 2009, end: 2019
  2. PREDNISONE. [Concomitant]
     Active Substance: PREDNISONE
     Route: 048
     Dates: start: 20180420
  3. PRILOSEC [Suspect]
     Active Substance: OMEPRAZOLE MAGNESIUM
     Indication: GASTROOESOPHAGEAL REFLUX DISEASE
     Route: 048
     Dates: start: 199501, end: 201801
  4. METOCLOPRAMIDE. [Concomitant]
     Active Substance: METOCLOPRAMIDE
     Route: 048
     Dates: start: 20180420
  5. VITAMIN B12 [Concomitant]
     Active Substance: CYANOCOBALAMIN
     Indication: ASTHENIA
     Route: 048
     Dates: start: 20180420
  6. ATORVASTATIN [Concomitant]
     Active Substance: ATORVASTATIN
     Route: 048
     Dates: start: 20180420
  7. NEXIUM [Suspect]
     Active Substance: ESOMEPRAZOLE MAGNESIUM
     Indication: GASTROOESOPHAGEAL REFLUX DISEASE
     Route: 048
     Dates: start: 20010220, end: 20171231
  8. PRILOSEC [Suspect]
     Active Substance: OMEPRAZOLE MAGNESIUM
     Indication: GASTROOESOPHAGEAL REFLUX DISEASE
     Route: 048
     Dates: start: 19950101, end: 20180101
  9. PRILOSEC OTC [Suspect]
     Active Substance: OMEPRAZOLE MAGNESIUM
     Indication: GASTROOESOPHAGEAL REFLUX DISEASE
     Route: 048
     Dates: start: 20030620, end: 20171231
  10. LOSARTAN/HCTZ [Concomitant]
     Active Substance: HYDROCHLOROTHIAZIDE\LOSARTAN
     Route: 048
     Dates: start: 20180420
  11. PRILOSEC OTC [Suspect]
     Active Substance: OMEPRAZOLE MAGNESIUM
     Indication: GASTROOESOPHAGEAL REFLUX DISEASE
     Route: 048
     Dates: start: 199501, end: 201801
  12. VITAMIN D [Concomitant]
     Active Substance: VITAMIN D NOS
     Indication: VITAMIN D DEFICIENCY
     Route: 065
     Dates: start: 2009, end: 2019
  13. VITAMIN E [Concomitant]
     Active Substance: .ALPHA.-TOCOPHEROL
     Indication: VITAMIN E DEFICIENCY
     Route: 065
     Dates: start: 2009, end: 2019
  14. TAGAMET HB [Concomitant]
     Active Substance: CIMETIDINE
     Route: 065
     Dates: start: 1995
  15. PRILOSEC [Suspect]
     Active Substance: OMEPRAZOLE MAGNESIUM
     Indication: GASTROOESOPHAGEAL REFLUX DISEASE
     Route: 048
     Dates: start: 19950101, end: 20171231
  16. NEXIUM [Suspect]
     Active Substance: ESOMEPRAZOLE MAGNESIUM
     Indication: GASTROOESOPHAGEAL REFLUX DISEASE
     Route: 048
     Dates: start: 199501, end: 201801
  17. ASPIRIN. [Concomitant]
     Active Substance: ASPIRIN
     Indication: BLOOD PRESSURE ABNORMAL
     Route: 048
     Dates: start: 20180420
  18. BREO ELLIPTA [Concomitant]
     Active Substance: FLUTICASONE FUROATE\VILANTEROL TRIFENATATE
     Dosage: 1 PUFF
     Route: 045
     Dates: start: 20180420
  19. CARVEDILOL. [Concomitant]
     Active Substance: CARVEDILOL
     Route: 048
     Dates: start: 20180420
  20. CYCLOBENZAPRINE. [Concomitant]
     Active Substance: CYCLOBENZAPRINE
     Route: 048
     Dates: start: 20180420
  21. VITAMIN B12 [Concomitant]
     Active Substance: CYANOCOBALAMIN
     Indication: ASTHENIA
     Route: 065
     Dates: start: 2009, end: 2019

REACTIONS (3)
  - Chronic kidney disease [Not Recovered/Not Resolved]
  - Renal injury [Unknown]
  - Renal failure [Unknown]

NARRATIVE: CASE EVENT DATE: 2013
